FAERS Safety Report 24016481 (Version 1)
Quarter: 2024Q2

REPORT INFORMATION
  Report Type: Spontaneous
  Country: DE (occurrence: DE)
  Receive Date: 20240626
  Receipt Date: 20240626
  Transmission Date: 20240716
  Serious: Yes (Hospitalization, Other)
  Sender: FDA-Public Use
  Company Number: DE-DSJP-DSE-2024-129129

PATIENT
  Age: 43 Year
  Sex: Male

DRUGS (1)
  1. EDOXABAN [Suspect]
     Active Substance: EDOXABAN
     Indication: Atrial fibrillation
     Dosage: UNK
     Route: 065

REACTIONS (10)
  - Sepsis [Unknown]
  - Pneumonia [Unknown]
  - Cardiovascular insufficiency [Unknown]
  - Macroglossia [Recovering/Resolving]
  - Upper airway obstruction [Unknown]
  - Aspiration [Unknown]
  - Abdominal compartment syndrome [Unknown]
  - Fall [Unknown]
  - Tongue biting [Unknown]
  - Haematoma [Unknown]
